FAERS Safety Report 4274160-X (Version None)
Quarter: 2004Q1

REPORT INFORMATION
  Report Type: 
  Country: None (occurrence: None)
  Receive Date: 20040115
  Receipt Date: 20040105
  Transmission Date: 20041129
  Serious: No
  Sender: FDA-Public Use
  Company Number: 04P-008-0246396-00

PATIENT
  Age: 33 Year
  Sex: Male

DRUGS (2)
  1. KALETRA [Suspect]
     Indication: HIV INFECTION
  2. ABACAVIR [Suspect]
     Indication: HIV INFECTION

REACTIONS (8)
  - APRAXIA [None]
  - DYSPHAGIA [None]
  - ENCEPHALITIS [None]
  - ERYTHEMA INFECTIOSUM [None]
  - EYE PAIN [None]
  - HAEMOGLOBIN DECREASED [None]
  - HEMIPARESIS [None]
  - IMMUNE RECONSTITUTION SYNDROME [None]
